FAERS Safety Report 10900913 (Version 1)
Quarter: 2015Q1

REPORT INFORMATION
  Report Type: Spontaneous
  Country: IN (occurrence: None)
  Receive Date: 20150303
  Receipt Date: 20150303
  Transmission Date: 20150721
  Serious: Yes (Hospitalization)
  Sender: FDA-Public Use
  Company Number: None

PATIENT
  Age: 53 Year
  Sex: Male

DRUGS (4)
  1. LOSARTAN 50 MG [Concomitant]
  2. PANTOPRAZOLE 40MG [Concomitant]
     Active Substance: PANTOPRAZOLE SODIUM
  3. PREDNISOLONE. [Suspect]
     Active Substance: PREDNISOLONE
     Indication: VIITH NERVE PARALYSIS
     Route: 048
  4. T.ACIVIR 400MG [Concomitant]

REACTIONS (1)
  - Diabetes mellitus inadequate control [None]
